FAERS Safety Report 8896438 (Version 1)
Quarter: 2012Q4

REPORT INFORMATION
  Report Type: Spontaneous
  Country: IN (occurrence: None)
  Receive Date: 20121105
  Receipt Date: 20121105
  Transmission Date: 20130627
  Serious: Yes (Other)
  Sender: FDA-Public Use
  Company Number: DSA_60460_2012

PATIENT
  Age: 66 Year
  Sex: Male

DRUGS (3)
  1. FLUOROURACIL (FLUOROURACIL) [Suspect]
     Indication: LARYNGEAL CANCER
  2. DOCETAXEL [Suspect]
     Indication: LARYNGEAL CANCER
     Dosage: Every cycle
  3. CISPLATIN [Suspect]
     Indication: LARYNGEAL CANCER
     Dosage: Every cycle

REACTIONS (2)
  - Gastrointestinal toxicity [None]
  - Haematotoxicity [None]
